FAERS Safety Report 10963094 (Version 1)
Quarter: 2015Q1

REPORT INFORMATION
  Report Type: Report from Study
  Country: BE (occurrence: BE)
  Receive Date: 20150327
  Receipt Date: 20150327
  Transmission Date: 20150721
  Serious: Yes (Hospitalization)
  Sender: FDA-Public Use
  Company Number: BE-ABBVIE-14P-013-1308755-00

PATIENT
  Sex: Male

DRUGS (3)
  1. DUODOPA [Suspect]
     Active Substance: CARBIDOPA\LEVODOPA
     Indication: PARKINSON^S DISEASE
     Dosage: AM = 6 ML, CD = 2.2 ML/H DURING 16H, ED = 1 ML
     Route: 050
     Dates: start: 20120220, end: 20120224
  2. DUODOPA [Suspect]
     Active Substance: CARBIDOPA\LEVODOPA
     Dosage: AM = 1 ML, CD = 3.5 ML/H DURING 16H, ED = 1.5 ML, ND = 1.5 ML/H DURING 8H
     Route: 050
     Dates: start: 20140417
  3. DUODOPA [Suspect]
     Active Substance: CARBIDOPA\LEVODOPA
     Dosage: DOSE CONTINUOUSLY MONITORED AND ADAPTED
     Route: 050
     Dates: start: 20140224, end: 20140417

REACTIONS (5)
  - Device dislocation [Unknown]
  - Nausea [Recovered/Resolved]
  - Dysphagia [Unknown]
  - Decreased appetite [Recovered/Resolved]
  - Device kink [Unknown]
